FAERS Safety Report 7158676-4 (Version None)
Quarter: 2010Q4

REPORT INFORMATION
  Report Type: 
  Country: None (occurrence: None)
  Receive Date: 20101214
  Receipt Date: 20100624
  Transmission Date: 20110411
  Serious: No
  Sender: FDA-Public Use
  Company Number: US-ASTRAZENECA-2010SE29627

PATIENT
  Age: 61 Year
  Sex: Male
  Weight: 99.8 kg

DRUGS (5)
  1. CRESTOR [Suspect]
     Indication: BLOOD CHOLESTEROL INCREASED
     Route: 048
     Dates: start: 20100401
  2. CRESTOR [Suspect]
     Route: 048
  3. ZINC [Concomitant]
  4. CALCIUM [Concomitant]
  5. GERD MEDICATION [Concomitant]

REACTIONS (3)
  - COUGH [None]
  - HYPERSENSITIVITY [None]
  - THROAT IRRITATION [None]
